FAERS Safety Report 7108261-5 (Version None)
Quarter: 2010Q4

REPORT INFORMATION
  Report Type: 
  Country: None (occurrence: None)
  Receive Date: 20101103
  Receipt Date: 20101025
  Transmission Date: 20110411
  Serious: Yes (Hospitalization)
  Sender: FDA-Public Use
  Company Number: 2010SP056714

PATIENT
  Age: 68 Year
  Sex: Female

DRUGS (2)
  1. VIRAFERONPEG [Suspect]
     Indication: HEPATITIS C
     Dosage: 80 MCG; QW; SC
     Route: 058
     Dates: start: 20080908, end: 20090130
  2. REBETOL [Suspect]
     Indication: HEPATITIS C
     Dosage: 1 GM; BID; PO
     Route: 048
     Dates: start: 20080908, end: 20090130

REACTIONS (5)
  - HEPATIC CIRRHOSIS [None]
  - HEPATIC NEOPLASM [None]
  - HEPATITIS [None]
  - LIVER DISORDER [None]
  - REFUSAL OF TREATMENT BY PATIENT [None]
